FAERS Safety Report 9523480 (Version 1)
Quarter: 2013Q3

REPORT INFORMATION
  Report Type: Spontaneous
  Country: CA (occurrence: CA)
  Receive Date: 20130913
  Receipt Date: 20130913
  Transmission Date: 20140515
  Serious: Yes (Hospitalization)
  Sender: FDA-Public Use
  Company Number: CA-ASTRAZENECA-2013SE67635

PATIENT
  Age: 61 Year
  Sex: Male

DRUGS (8)
  1. BUDESONIDE [Suspect]
     Route: 055
  2. SYMBICORT TURBUHALER [Suspect]
     Dosage: TWO TIMES A DAY
     Route: 055
  3. ACCOLATE [Suspect]
     Route: 048
  4. CICLESONIDE [Suspect]
     Route: 055
  5. IMMUNE GLOBULIN [Suspect]
     Dosage: ONCE EVERY MONTH
     Route: 042
  6. MOXIFLOXACIN [Suspect]
     Route: 055
  7. SALBUTAMOL [Suspect]
     Route: 065
  8. SPIRIVA [Suspect]
     Route: 065

REACTIONS (3)
  - Asthma [Recovered/Resolved]
  - Condition aggravated [Recovered/Resolved]
  - Drug ineffective [Recovered/Resolved]
